FAERS Safety Report 9833218 (Version 1)
Quarter: 2014Q1

REPORT INFORMATION
  Report Type: Spontaneous
  Country: US (occurrence: US)
  Receive Date: 20140121
  Receipt Date: 20140121
  Transmission Date: 20141002
  Serious: No
  Sender: FDA-Public Use
  Company Number: US-BAUSCH-BL-2013-001731

PATIENT
  Age: 38 Year
  Sex: Female

DRUGS (1)
  1. ALAWAY (KETOTIFEN FUMARATE OPHTHALMIC SOLUTION) [Suspect]
     Indication: EYE PRURITUS
     Dosage: ONE DROP IN EACH EYE DAILY
     Route: 047
     Dates: start: 20130304, end: 20130307

REACTIONS (1)
  - Drug ineffective [Not Recovered/Not Resolved]
